FAERS Safety Report 10136964 (Version 1)
Quarter: 2014Q2

REPORT INFORMATION
  Report Type: Spontaneous
  Country: US (occurrence: None)
  Receive Date: 20140428
  Receipt Date: 20140428
  Transmission Date: 20141212
  Serious: No
  Sender: FDA-Public Use
  Company Number: None

PATIENT
  Sex: Male
  Weight: 78.02 kg

DRUGS (1)
  1. SERTRALINE [Suspect]
     Indication: ANXIETY DISORDER
     Route: 048
     Dates: start: 200705

REACTIONS (2)
  - Drug ineffective [None]
  - Feeling abnormal [None]
